FAERS Safety Report 10370418 (Version 1)
Quarter: 2014Q1

REPORT INFORMATION
  Report Type: Spontaneous
  Country: US (occurrence: None)
  Receive Date: 20140306
  Receipt Date: 20140306
  Transmission Date: 20141002
  Serious: Yes (Hospitalization)
  Sender: FDA-Public Use
  Company Number: 163-21880-13084184

PATIENT
  Age: 72 Year
  Sex: Male
  Weight: 103.1 kg

DRUGS (3)
  1. REVLIMID [Suspect]
     Indication: DIFFUSE LARGE B-CELL LYMPHOMA
     Route: 048
     Dates: start: 201107, end: 201203
  2. RITUXAN (RITUXIMAB) [Concomitant]
  3. INSULIN (INSULIN) [Concomitant]

REACTIONS (1)
  - Diffuse large B-cell lymphoma recurrent [None]
